FAERS Safety Report 5065724-4 (Version None)
Quarter: 2006Q3

REPORT INFORMATION
  Report Type: 
  Country: None (occurrence: None)
  Receive Date: 20060731
  Receipt Date: 20050613
  Transmission Date: 20061208
  Serious: Yes (Life-Threatening, Disabling)
  Sender: FDA-Public Use
  Company Number: JP-ROCHE-407732

PATIENT
  Age: 11 Month
  Sex: Male

DRUGS (7)
  1. TAMIFLU [Suspect]
     Route: 048
     Dates: start: 20050325, end: 20050326
  2. TAMIFLU [Suspect]
     Route: 048
     Dates: start: 20050327, end: 20050331
  3. ASVERIN [Concomitant]
     Route: 048
     Dates: start: 20050324
  4. MUCOSOLVAN [Concomitant]
     Route: 048
     Dates: start: 20050324
  5. POLARAMINE [Concomitant]
     Route: 048
     Dates: start: 20050324
  6. MEPTIN [Concomitant]
     Route: 048
     Dates: start: 20050324
  7. ANHIBA [Concomitant]
     Route: 048
     Dates: start: 20050325

REACTIONS (8)
  - BRAIN OEDEMA [None]
  - CARDIAC ARREST [None]
  - CEREBROVASCULAR DISORDER [None]
  - ENCEPHALOPATHY [None]
  - MUSCLE SPASMS [None]
  - MUSCULAR WEAKNESS [None]
  - PULMONARY OEDEMA [None]
  - RESPIRATORY ARREST [None]
